FAERS Safety Report 24283856 (Version 2)
Quarter: 2024Q3

REPORT INFORMATION
  Report Type: Spontaneous
  Country: US (occurrence: US)
  Receive Date: 20240905
  Receipt Date: 20240930
  Transmission Date: 20241017
  Serious: No
  Sender: APOTEX
  Company Number: US-APOTEX-2024AP009477

PATIENT
  Sex: Female

DRUGS (1)
  1. PAROXETINE HYDROCHLORIDE [Suspect]
     Active Substance: PAROXETINE HYDROCHLORIDE\PAROXETINE HYDROCHLORIDE ANHYDROUS
     Indication: Product used for unknown indication
     Dosage: UNK
     Route: 065
     Dates: start: 2024

REACTIONS (7)
  - Panic disorder [Unknown]
  - Anxiety [Unknown]
  - Affective disorder [Unknown]
  - Sleep disorder [Unknown]
  - Condition aggravated [Unknown]
  - Product substitution issue [Unknown]
  - Malaise [Unknown]

NARRATIVE: CASE EVENT DATE: 20240101
